FAERS Safety Report 20821989 (Version 1)
Quarter: 2022Q2

REPORT INFORMATION
  Report Type: Spontaneous
  Country: US (occurrence: None)
  Receive Date: 20220511
  Receipt Date: 20220511
  Transmission Date: 20220721
  Serious: Yes (Other)
  Sender: FDA-Public Use
  Company Number: None

PATIENT
  Age: 75 Year
  Sex: Female
  Weight: 81.19 kg

DRUGS (7)
  1. VERAPAMIL HYDROCHLORIDE [Suspect]
     Active Substance: VERAPAMIL HYDROCHLORIDE
  2. BENICAR [Suspect]
     Active Substance: OLMESARTAN MEDOXOMIL
  3. HYDROCHLOROTHIAZIDE [Suspect]
     Active Substance: HYDROCHLOROTHIAZIDE
  4. PROPRANOLOL HYDROCHLORIDE [Suspect]
     Active Substance: PROPRANOLOL HYDROCHLORIDE
  5. CAPTOPRIL [Suspect]
     Active Substance: CAPTOPRIL
  6. SPIRONOLACTONE [Suspect]
     Active Substance: SPIRONOLACTONE
  7. LOSARTAN [Suspect]
     Active Substance: LOSARTAN

REACTIONS (9)
  - Treatment failure [None]
  - Drug ineffective [None]
  - Drug intolerance [None]
  - Nausea [None]
  - Gout [None]
  - Dyspnoea [None]
  - Chest pain [None]
  - Urticaria [None]
  - Paraesthesia [None]
